FAERS Safety Report 5033559-4 (Version None)
Quarter: 2006Q2

REPORT INFORMATION
  Report Type: 
  Country: None (occurrence: None)
  Receive Date: 20060623
  Receipt Date: 20060215
  Transmission Date: 20061013
  Serious: Yes (Death)
  Sender: FDA-Public Use
  Company Number: US-ROCHE-436883

PATIENT
  Sex: Female

DRUGS (1)
  1. PEGASYS [Suspect]
     Route: 058
     Dates: start: 20051007, end: 20051216

REACTIONS (4)
  - CARDIOPULMONARY FAILURE [None]
  - HEPATIC FAILURE [None]
  - RENAL FAILURE CHRONIC [None]
  - SEPSIS [None]
